FAERS Safety Report 14371872 (Version 2)
Quarter: 2018Q1

REPORT INFORMATION
  Report Type: Spontaneous
  Country: US (occurrence: US)
  Receive Date: 20180110
  Receipt Date: 20180124
  Transmission Date: 20180509
  Serious: Yes (Other)
  Sender: FDA-Public Use
  Company Number: US-BAYER-2018-001468

PATIENT
  Age: 46 Year
  Sex: Female

DRUGS (2)
  1. MIRENA [Suspect]
     Active Substance: LEVONORGESTREL
     Indication: MENOPAUSAL SYMPTOMS
     Dosage: 20 MCG/24HR, CONT
     Route: 015
     Dates: start: 201703
  2. MIRENA [Suspect]
     Active Substance: LEVONORGESTREL
     Indication: MENOPAUSAL SYMPTOMS PROPHYLAXIS
     Dosage: 20 UNK, UNK

REACTIONS (8)
  - Urinary tract infection [Recovered/Resolved]
  - Device use issue [None]
  - Blood urine present [None]
  - Vaginal haemorrhage [None]
  - Medical device discomfort [None]
  - Off label use of device [None]
  - Genital haemorrhage [None]
  - Micturition urgency [Recovered/Resolved]

NARRATIVE: CASE EVENT DATE: 201703
